FAERS Safety Report 5453779-4 (Version None)
Quarter: 2007Q3

REPORT INFORMATION
  Report Type: 
  Country: None (occurrence: None)
  Receive Date: 20070917
  Receipt Date: 20070905
  Transmission Date: 20080115
  Serious: Yes (Hospitalization)
  Sender: FDA-Public Use
  Company Number: B0487220A

PATIENT
  Age: 76 Year
  Sex: Female

DRUGS (4)
  1. CALCIUM CARBONATE [Suspect]
     Indication: DYSPEPSIA
     Dosage: 8TAB PER DAY
     Route: 048
  2. SALBUTAMOL [Concomitant]
     Indication: CHRONIC OBSTRUCTIVE PULMONARY DISEASE
     Route: 055
  3. CALCIUM CHANNEL BLOCKER [Concomitant]
     Indication: HYPERTENSION
     Route: 065
  4. IBUPROFEN [Concomitant]
     Indication: OSTEOARTHRITIS
     Route: 065

REACTIONS (7)
  - CONSTIPATION [None]
  - DIARRHOEA [None]
  - HYPERCALCAEMIA [None]
  - MILK-ALKALI SYNDROME [None]
  - NOCTURIA [None]
  - POLYDIPSIA [None]
  - POLYURIA [None]
